FAERS Safety Report 7444163-2 (Version None)
Quarter: 2011Q2

REPORT INFORMATION
  Report Type: 
  Country: None (occurrence: None)
  Receive Date: 20110419
  Receipt Date: 20110404
  Transmission Date: 20111010
  Serious: Yes (Other)
  Sender: FDA-Public Use
  Company Number: AUR-APL-2011-01232

PATIENT
  Age: 42 Year
  Sex: Male

DRUGS (2)
  1. PHENOBARBITAL TAB [Suspect]
  2. RISPERIDONE [Suspect]

REACTIONS (2)
  - BLOOD CHOLESTEROL INCREASED [None]
  - APHASIA [None]
